FAERS Safety Report 6031309-6 (Version None)
Quarter: 2008Q4

REPORT INFORMATION
  Report Type: 
  Country: None (occurrence: None)
  Receive Date: 20081224
  Receipt Date: 20080826
  Transmission Date: 20090506
  Serious: No
  Sender: FDA-Public Use
  Company Number: US-CVT-080080

PATIENT
  Age: 70 Year
  Sex: Male

DRUGS (26)
  1. RANEXA [Suspect]
     Indication: CORONARY ARTERY DISEASE
     Dosage: 500 MG, BID, ORAL
     Route: 048
     Dates: start: 20070824, end: 20080626
  2. COLACE (DOCUSATE SODIUM) [Concomitant]
  3. GLUCOSAMINE W/CHONDROITIN (CHONDROITIN SULFATE, GLUCOSAMINE) [Concomitant]
  4. OCUVITE /01762701/ (ASCORBIC ACID, BETACAROTENE, COPPER, TOCOFERSOLAN, [Concomitant]
  5. OXYGEN (OXYGEN) [Concomitant]
  6. SALINE (SODIUM CHLORIDE) [Concomitant]
  7. LISINOPRIL /00894001/ (LISINOPRIL) [Concomitant]
  8. PLAVIX [Concomitant]
  9. OMEGA-3 (OMEGA-3 TRIGLYCERIDES) [Concomitant]
  10. ANALPRAM-HC (HYDROCORTISONE ACETATE, PRAMOCAINE HYDROCHLORIDE) [Concomitant]
  11. ASTELIN [Concomitant]
  12. VYTORIN [Concomitant]
  13. ASPIRIN [Concomitant]
  14. NORVASC /00972401/ (AMLODIPINE) [Concomitant]
  15. PROZAC [Concomitant]
  16. TOPROL-XL [Concomitant]
  17. ESZOPICLONE (ESZOPICLONE) [Concomitant]
  18. MULTIVITAMIN /00831701/ (VITAMINS NOS) [Concomitant]
  19. METAMUCIL /00091301/ (PSYLLIUM HYDROPHILIC MUCILLOID) [Concomitant]
  20. CLONAZEPAM [Concomitant]
  21. ANDROGEL [Concomitant]
  22. NITRO-DUR [Concomitant]
  23. SYNTHROID [Concomitant]
  24. NEXIUM [Concomitant]
  25. NITROGLYCERIN [Concomitant]
  26. ZIPRASIDONE HCL [Concomitant]

REACTIONS (1)
  - ANGINA PECTORIS [None]
